FAERS Safety Report 10020443 (Version 1)
Quarter: 2014Q1

REPORT INFORMATION
  Report Type: Spontaneous
  Country: US (occurrence: US)
  Receive Date: 20140319
  Receipt Date: 20140319
  Transmission Date: 20141002
  Serious: No
  Sender: FDA-Public Use
  Company Number: US-BIOGENIDEC-2014BI022573

PATIENT
  Age: 28 Year
  Sex: Female
  Weight: 65 kg

DRUGS (5)
  1. TECFIDERA [Suspect]
     Indication: PRODUCT USED FOR UNKNOWN INDICATION
     Route: 048
  2. B COMPLEX [Concomitant]
  3. CALCIUM 500 [Concomitant]
  4. VITAMIN D CHW [Concomitant]
  5. FISH OIL [Concomitant]

REACTIONS (4)
  - Rhinorrhoea [Unknown]
  - Sneezing [Unknown]
  - Cough [Unknown]
  - White blood cell count decreased [Unknown]
